FAERS Safety Report 7632533-9 (Version None)
Quarter: 2011Q3

REPORT INFORMATION
  Report Type: 
  Country: None (occurrence: None)
  Receive Date: 20110725
  Receipt Date: 20101004
  Transmission Date: 20111222
  Serious: No
  Sender: FDA-Public Use
  Company Number: US-BRISTOL-MYERS SQUIBB COMPANY-15316342

PATIENT
  Age: 46 Year
  Sex: Female

DRUGS (1)
  1. COUMADIN [Suspect]
     Dates: start: 20090401

REACTIONS (1)
  - ALOPECIA [None]
